FAERS Safety Report 4422861-2 (Version None)
Quarter: 2004Q3

REPORT INFORMATION
  Report Type: 
  Country: None (occurrence: None)
  Receive Date: 20040804
  Receipt Date: 20040802
  Transmission Date: 20050211
  Serious: Yes (Death, Hospitalization)
  Sender: FDA-Public Use
  Company Number: T04-USA-03707-01

PATIENT
  Age: 86 Year
  Sex: Female

DRUGS (12)
  1. NAMENDA [Suspect]
     Indication: DEMENTIA ALZHEIMER'S TYPE
     Dosage: 20 MG QD PO
     Route: 048
     Dates: start: 20040127, end: 20040101
  2. REMINYL [Suspect]
     Indication: DEMENTIA ALZHEIMER'S TYPE
     Dosage: 16 MG
     Dates: start: 20030425, end: 20040604
  3. REMINYL [Suspect]
     Indication: DEMENTIA ALZHEIMER'S TYPE
     Dosage: 8 MG QD
     Dates: end: 20030424
  4. LOMOTIL [Concomitant]
  5. COUMADIN [Concomitant]
  6. TOPROL-XL [Concomitant]
  7. CORDARONE [Concomitant]
  8. ALTACE [Concomitant]
  9. MICRONASE [Concomitant]
  10. LASIX [Concomitant]
  11. PROTONIX [Concomitant]
  12. LESCOL [Concomitant]

REACTIONS (5)
  - DEPRESSED LEVEL OF CONSCIOUSNESS [None]
  - PNEUMONIA [None]
  - SEPSIS [None]
  - SUDDEN DEATH [None]
  - URINARY TRACT INFECTION [None]
